FAERS Safety Report 11384851 (Version 1)
Quarter: 2015Q3

REPORT INFORMATION
  Report Type: Spontaneous
  Country: US (occurrence: US)
  Receive Date: 20150811
  Receipt Date: 20150811
  Transmission Date: 20151125
  Serious: No
  Sender: FDA-Public Use
  Company Number: US-ELI_LILLY_AND_COMPANY-US201106006383

PATIENT
  Sex: Male
  Weight: 73.02 kg

DRUGS (2)
  1. CIALIS [Suspect]
     Active Substance: TADALAFIL
     Indication: ERECTILE DYSFUNCTION
     Dosage: 2.5 MG, QD
     Dates: start: 201104, end: 201105
  2. CIALIS [Suspect]
     Active Substance: TADALAFIL
     Dosage: 1 DF, PRN

REACTIONS (1)
  - Drug effect delayed [Recovered/Resolved]
